FAERS Safety Report 6931709-3 (Version None)
Quarter: 2010Q3

REPORT INFORMATION
  Report Type: 
  Country: None (occurrence: None)
  Receive Date: 20100812
  Receipt Date: 20090622
  Transmission Date: 20110219
  Serious: No
  Sender: FDA-Public Use
  Company Number: 2009-00155

PATIENT
  Age: 54 Year
  Sex: Female
  Weight: 58.9676 kg

DRUGS (3)
  1. ZICAM COLD REMEDY ORAL MIST [Suspect]
     Dosage: 2-3XS DAY X 1 MONTH
     Dates: start: 20090522, end: 20090619
  2. ASMANEX TWISTHALER [Concomitant]
  3. PROVENTIL GENTLEHALER [Concomitant]

REACTIONS (2)
  - AGEUSIA [None]
  - ANOSMIA [None]
